FAERS Safety Report 21320760 (Version 2)
Quarter: 2022Q4

REPORT INFORMATION
  Report Type: Other
  Country: GB (occurrence: GB)
  Receive Date: 20220912
  Receipt Date: 20221111
  Transmission Date: 20230113
  Serious: Yes (Other)
  Sender: FDA-Public Use
  Company Number: None

PATIENT
  Sex: Male

DRUGS (13)
  1. GABAPENTIN [Interacting]
     Active Substance: GABAPENTIN
     Indication: Product used for unknown indication
     Dosage: 300 MILLIGRAM, 4-3 TIMES A DAY = 3,600MG, OVER 10 YEARS (CAPSULE) (TOOK AWAY 2,700MG A DAY, LEAVING
     Route: 065
  2. GABAPENTIN [Interacting]
     Active Substance: GABAPENTIN
     Dosage: UNK (DOSE DECREASED)
     Route: 065
  3. BACLOFEN [Interacting]
     Active Substance: BACLOFEN
     Indication: Product used for unknown indication
     Dosage: 10 MILLIGRAM, 1-4 TIMES A DAY = 40MG, OVER 10 YEARS (TABLET, UNCOATED)
     Route: 048
     Dates: end: 20191111
  4. ISOSORBIDE MONONITRATE [Interacting]
     Active Substance: ISOSORBIDE MONONITRATE
     Indication: Product used for unknown indication
     Dosage: 80 MG PER DAY, OVER 10 YEARS (TABLET UNCOATED).
     Route: 048
  5. ATENOLOL [Interacting]
     Active Substance: ATENOLOL
     Indication: Product used for unknown indication
     Dosage: 100 MG PER DAY, 1 A DAY OVER 10 YEARS (TABLET UNCOATED).
     Route: 048
  6. AMLODIPINE [Interacting]
     Active Substance: AMLODIPINE BESYLATE
     Indication: Product used for unknown indication
     Dosage: 10 MG PER DAY, 1 A DAY OVER 10 YEARS (TABLET UNCOATED).
     Route: 048
  7. ALLOPURINOL [Interacting]
     Active Substance: ALLOPURINOL
     Indication: Product used for unknown indication
     Dosage: 300 MG PER DAY, 1 A DAY OVER 10 YEARS. (TABLET)
     Route: 065
  8. LISINOPRIL [Interacting]
     Active Substance: LISINOPRIL
     Indication: Product used for unknown indication
     Dosage: 20 MG PER DAY, 1 A DAY OVER 10 YEARS (TABLET UNCOATED)
     Route: 048
  9. CLONAZEPAM [Interacting]
     Active Substance: CLONAZEPAM
     Indication: Product used for unknown indication
     Dosage: 0.5 MILLIGRAM,  1-4 TIMES A DAY, OVER 10 YEARS (TABLET, UNCOATED)
     Route: 048
     Dates: end: 20191111
  10. TRAMADOL [Interacting]
     Active Substance: TRAMADOL
     Indication: Product used for unknown indication
     Dosage: 50 MILLIGRAM, 1-4 TIMES A DAY = 200MG, OVER 10 YEARS (CAPSULE)
     Route: 065
     Dates: end: 20191111
  11. SERTRALINE [Interacting]
     Active Substance: SERTRALINE HYDROCHLORIDE
     Indication: Product used for unknown indication
     Dosage: 200MG PER DAY, OVER 10 YEARS (TABLET UNCOATED).
     Route: 048
  12. ASPIRIN [Interacting]
     Active Substance: ASPIRIN
     Indication: Product used for unknown indication
     Dosage: 75 MG PER DAY, 1 A DAY OVER 10 YEARS. TOTAL PER DAY 4,625 MG A DAY/10 YEAR (DISPERSIBLE TABLET).
     Route: 065
  13. ATORVASTATIN [Interacting]
     Active Substance: ATORVASTATIN
     Indication: Product used for unknown indication
     Dosage: 20 MG PER DAY, 1 A DAY OVER 10 YEARS (TABLET UNCOATED).
     Route: 048

REACTIONS (9)
  - Coordination abnormal [Recovered/Resolved]
  - Drug interaction [Unknown]
  - Agitation postoperative [Recovered/Resolved]
  - Confusion postoperative [Recovered/Resolved]
  - Abnormal dreams [Recovered/Resolved]
  - Muscle spasms [Recovered/Resolved]
  - Visual impairment [Recovered/Resolved]
  - Insomnia [Recovered/Resolved]
  - Headache [Recovered/Resolved]
